FAERS Safety Report 8476370-4 (Version None)
Quarter: 2012Q2

REPORT INFORMATION
  Report Type: 
  Country: None (occurrence: None)
  Receive Date: 20120628
  Receipt Date: 20120619
  Transmission Date: 20120825
  Serious: Yes (Other)
  Sender: FDA-Public Use
  Company Number: US-JNJFOC-20120610237

PATIENT
  Sex: Female

DRUGS (3)
  1. REMICADE [Suspect]
     Route: 042
     Dates: start: 20040101
  2. REMICADE [Suspect]
     Route: 042
     Dates: start: 20030101
  3. REMICADE [Suspect]
     Indication: PRODUCT USED FOR UNKNOWN INDICATION
     Route: 042
     Dates: start: 20100325

REACTIONS (3)
  - SKIN ULCER [None]
  - BASAL CELL CARCINOMA [None]
  - LUNG NEOPLASM [None]
